FAERS Safety Report 4670946-8 (Version None)
Quarter: 2005Q2

REPORT INFORMATION
  Report Type: 
  Country: None (occurrence: None)
  Receive Date: 20050523
  Receipt Date: 20050510
  Transmission Date: 20051028
  Serious: Yes (Hospitalization)
  Sender: FDA-Public Use
  Company Number: 2005059217

PATIENT
  Age: 64 Year
  Sex: Female
  Weight: 49 kg

DRUGS (3)
  1. ZITHROMAX [Suspect]
     Indication: ACUTE TONSILLITIS
     Dosage: 2 DOSE FORMS (DAILY), ORAL
     Route: 048
     Dates: start: 20050221, end: 20050224
  2. BETAMETHASONE [Suspect]
     Indication: ACUTE TONSILLITIS
     Dosage: 2 DOSES FORMS (DAILY), ORAL
     Route: 048
     Dates: start: 20050221, end: 20050225
  3. DORZOLAMIDE (DORZOLAMIDE) [Suspect]
     Indication: ILL-DEFINED DISORDER
     Dosage: ORAL
     Route: 048
     Dates: start: 20050114

REACTIONS (3)
  - ACUTE GENERALISED EXANTHEMATOUS PUSTULOSIS [None]
  - PUSTULAR PSORIASIS [None]
  - TOXIC SKIN ERUPTION [None]
